FAERS Safety Report 9486684 (Version 1)
Quarter: 2013Q3

REPORT INFORMATION
  Report Type: Spontaneous
  Country: US (occurrence: None)
  Receive Date: 20130827
  Receipt Date: 20130827
  Transmission Date: 20140515
  Serious: Yes (Disabling)
  Sender: FDA-Public Use
  Company Number: None

PATIENT
  Age: 70 None
  Sex: Female

DRUGS (22)
  1. PROLIA [Suspect]
     Indication: OSTEOPOROSIS
     Dosage: TWICE A YEAR INJECTION
     Dates: start: 20130812, end: 20130812
  2. LISINOPRIL [Concomitant]
  3. AMLODIPINE BESYLATE [Concomitant]
  4. ESTRADIAL [Concomitant]
  5. SYNTHROID [Concomitant]
  6. LIOTHYRONINE [Concomitant]
  7. CYMBALTA [Concomitant]
  8. PRIMODINE [Concomitant]
  9. LISINOPRIL [Concomitant]
  10. AMLODIPINE BESYLATE [Concomitant]
  11. ESTRADIAL [Concomitant]
  12. SYNTHROID [Concomitant]
  13. LIOTHYRONINE [Concomitant]
  14. CYMBALTA [Concomitant]
  15. PRIMODINE [Concomitant]
  16. CLONOZOPINE [Concomitant]
  17. BUMETANIDE [Concomitant]
  18. VENTOLIN HFA [Concomitant]
  19. SINGULAIR [Concomitant]
  20. SPIRIVIA [Concomitant]
  21. SYMBICORT [Concomitant]
  22. METHROTREXATE [Concomitant]

REACTIONS (3)
  - Convulsion [None]
  - Fatigue [None]
  - Myalgia [None]
